FAERS Safety Report 13852408 (Version 1)
Quarter: 2017Q3

REPORT INFORMATION
  Report Type: Spontaneous
  Country: NZ (occurrence: NZ)
  Receive Date: 20170810
  Receipt Date: 20170810
  Transmission Date: 20171127
  Serious: Yes (Hospitalization, Disabling, Other)
  Sender: FDA-Public Use
  Company Number: NZ-009507513-1708NZL004033

PATIENT
  Sex: Female

DRUGS (1)
  1. FOSAMAX [Suspect]
     Active Substance: ALENDRONATE SODIUM
     Dosage: UNK
     Dates: start: 201408, end: 20160707

REACTIONS (11)
  - Stress fracture [Unknown]
  - Tendonitis [Recovered/Resolved]
  - Stress fracture [Recovered/Resolved]
  - Pain [Not Recovered/Not Resolved]
  - Gait disturbance [Recovered/Resolved]
  - Bone pain [Recovered/Resolved]
  - Localised infection [Unknown]
  - Surgery [Recovering/Resolving]
  - Pain in extremity [Unknown]
  - Toxicity to various agents [Recovered/Resolved]
  - Fall [Unknown]

NARRATIVE: CASE EVENT DATE: 201507
